FAERS Safety Report 13039502 (Version 1)
Quarter: 2016Q4

REPORT INFORMATION
  Report Type: Spontaneous
  Country: US (occurrence: US)
  Receive Date: 20161217
  Receipt Date: 20161217
  Transmission Date: 20170207
  Serious: Yes (Disabling, Other)
  Sender: FDA-Public Use
  Company Number: None

PATIENT
  Age: 63 Year
  Sex: Female
  Weight: 78.75 kg

DRUGS (2)
  1. PAROXETINE. [Suspect]
     Active Substance: PAROXETINE
     Indication: DEPRESSION
     Dosage: QUANTITY:90 TABLET(S); ORAL?
     Route: 048
     Dates: start: 20161025, end: 20161123
  2. PAROXETINE. [Suspect]
     Active Substance: PAROXETINE
     Indication: ANXIETY
     Dosage: QUANTITY:90 TABLET(S); ORAL?
     Route: 048
     Dates: start: 20161025, end: 20161123

REACTIONS (5)
  - Depression [None]
  - Suicidal ideation [None]
  - Abnormal behaviour [None]
  - Confusional state [None]
  - Anxiety [None]

NARRATIVE: CASE EVENT DATE: 20161025
